FAERS Safety Report 15352469 (Version 1)
Quarter: 2018Q3

REPORT INFORMATION
  Report Type: Spontaneous
  Country: CO (occurrence: CO)
  Receive Date: 20180905
  Receipt Date: 20180905
  Transmission Date: 20181010
  Serious: Yes (Hospitalization, Other)
  Sender: FDA-Public Use
  Company Number: CO-PFIZER INC-2018352131

PATIENT
  Age: 60 Year
  Sex: Female

DRUGS (1)
  1. ATIVAN [Suspect]
     Active Substance: LORAZEPAM
     Dosage: 2 MG, DAILY

REACTIONS (3)
  - Panic reaction [Unknown]
  - Insomnia [Unknown]
  - Drug dependence [Unknown]
